FAERS Safety Report 6651110-X (Version None)
Quarter: 2010Q1

REPORT INFORMATION
  Report Type: 
  Country: None (occurrence: None)
  Receive Date: 20100323
  Receipt Date: 20100312
  Transmission Date: 20100710
  Serious: Yes (Other)
  Sender: FDA-Public Use
  Company Number: 20107901

PATIENT
  Sex: Female

DRUGS (1)
  1. LIORESAL [Suspect]
     Indication: MUSCLE SPASTICITY
     Dosage: 50 MCG, DAILY, INTRATHECAL
     Route: 037

REACTIONS (11)
  - DERMATITIS ALLERGIC [None]
  - HAEMATOMA [None]
  - HYPERSENSITIVITY [None]
  - IMPLANT SITE EFFUSION [None]
  - INTRACRANIAL HYPOTENSION [None]
  - OEDEMA [None]
  - PAIN [None]
  - PRURITUS [None]
  - SEROMA [None]
  - SKIN OEDEMA [None]
  - SWELLING [None]
